FAERS Safety Report 22730721 (Version 3)
Quarter: 2023Q4

REPORT INFORMATION
  Report Type: Spontaneous
  Country: CA (occurrence: CA)
  Receive Date: 20230720
  Receipt Date: 20231220
  Transmission Date: 20240110
  Serious: Yes (Other)
  Sender: FDA-Public Use
  Company Number: CA-HIKMA PHARMACEUTICALS USA INC.-CA-H14001-23-63367

PATIENT

DRUGS (14)
  1. ACETAMINOPHEN [Suspect]
     Active Substance: ACETAMINOPHEN
     Indication: Pruritus
     Dosage: 1000 MILLIGRAM
     Route: 048
  2. ACETAMINOPHEN [Suspect]
     Active Substance: ACETAMINOPHEN
     Indication: Premedication
  3. ACETAMINOPHEN [Suspect]
     Active Substance: ACETAMINOPHEN
     Indication: Infusion related reaction
  4. DESLORATADINE\PSEUDOEPHEDRINE SULFATE [Suspect]
     Active Substance: DESLORATADINE\PSEUDOEPHEDRINE SULFATE
     Indication: Pruritus
     Dosage: 5 MILLIGRAM
     Route: 048
  5. DESLORATADINE\PSEUDOEPHEDRINE SULFATE [Suspect]
     Active Substance: DESLORATADINE\PSEUDOEPHEDRINE SULFATE
     Indication: Premedication
  6. DESLORATADINE\PSEUDOEPHEDRINE SULFATE [Suspect]
     Active Substance: DESLORATADINE\PSEUDOEPHEDRINE SULFATE
     Indication: Infusion related reaction
  7. SODIUM CHLORIDE [Suspect]
     Active Substance: SODIUM CHLORIDE
     Indication: Premedication
  8. SODIUM CHLORIDE [Suspect]
     Active Substance: SODIUM CHLORIDE
     Indication: Pruritus
  9. SODIUM CHLORIDE [Suspect]
     Active Substance: SODIUM CHLORIDE
     Indication: Infusion related reaction
  10. REMICADE [Suspect]
     Active Substance: INFLIXIMAB
     Indication: Colitis ulcerative
     Dosage: 530 MILLIGRAM
     Route: 041
  11. REMICADE [Suspect]
     Active Substance: INFLIXIMAB
     Dosage: 540 MILLIGRAM
     Route: 041
  12. SODIUM CHLORIDE [Suspect]
     Active Substance: SODIUM CHLORIDE
     Indication: Pruritus
     Dosage: UNKNOWN
     Route: 065
  13. SODIUM CHLORIDE [Suspect]
     Active Substance: SODIUM CHLORIDE
     Indication: Infusion related reaction
  14. BENADRYL [Concomitant]
     Active Substance: DIPHENHYDRAMINE HYDROCHLORIDE
     Indication: Premedication
     Dosage: 50 MILLIGRAM
     Route: 042

REACTIONS (4)
  - Infusion related reaction [Recovered/Resolved]
  - Pruritus [Recovered/Resolved]
  - Flushing [Unknown]
  - Urticaria [Unknown]
